FAERS Safety Report 4932087-1 (Version None)
Quarter: 2006Q1

REPORT INFORMATION
  Report Type: 
  Country: None (occurrence: None)
  Receive Date: 20060228
  Receipt Date: 20060217
  Transmission Date: 20060701
  Serious: Yes (Other)
  Sender: FDA-Public Use
  Company Number: 200610497BCC

PATIENT
  Sex: Female

DRUGS (3)
  1. ALEVE COLD AND SINUS [Suspect]
     Indication: COUGH
     Dosage: 220 MD, BID; ORAL, 220 MG, ONCE; ORAL
     Route: 048
     Dates: start: 20060129
  2. ALEVE COLD AND SINUS [Suspect]
     Indication: NASAL CONGESTION
     Dosage: 220 MD, BID; ORAL, 220 MG, ONCE; ORAL
     Route: 048
     Dates: start: 20060129
  3. ALEVE COLD AND SINUS [Suspect]
     Indication: SINUS HEADACHE
     Dosage: 220 MD, BID; ORAL, 220 MG, ONCE; ORAL
     Route: 048
     Dates: start: 20060129

REACTIONS (8)
  - AGITATION [None]
  - COUGH [None]
  - HOMICIDAL IDEATION [None]
  - INSOMNIA [None]
  - NASAL CONGESTION [None]
  - RENAL PAIN [None]
  - SINUS HEADACHE [None]
  - URTICARIA [None]
